FAERS Safety Report 11241230 (Version 2)
Quarter: 2015Q3

REPORT INFORMATION
  Report Type: Spontaneous
  Country: BR (occurrence: BR)
  Receive Date: 20150706
  Receipt Date: 20150730
  Transmission Date: 20151125
  Serious: Yes (Death, Hospitalization, Other)
  Sender: FDA-Public Use
  Company Number: BR-PFIZER INC-2015217801

PATIENT
  Age: 78 Year
  Sex: Male
  Weight: 80 kg

DRUGS (5)
  1. LYRICA [Suspect]
     Active Substance: PREGABALIN
     Dosage: 75 MG, UNK
     Route: 048
     Dates: start: 201502
  2. OXYCONTIN [Concomitant]
     Active Substance: OXYCODONE HYDROCHLORIDE
  3. TENSULAN [Concomitant]
  4. MANTIDAN [Concomitant]
     Active Substance: AMANTADINE HYDROCHLORIDE
  5. MICARD [Concomitant]

REACTIONS (2)
  - Respiratory disorder [Unknown]
  - Death [Fatal]

NARRATIVE: CASE EVENT DATE: 2015
